FAERS Safety Report 8125959-0 (Version None)
Quarter: 2012Q1

REPORT INFORMATION
  Report Type: 
  Country: None (occurrence: None)
  Receive Date: 20120206
  Receipt Date: 20120201
  Transmission Date: 20120608
  Serious: Yes (Other)
  Sender: FDA-Public Use
  Company Number: 2012SP006175

PATIENT
  Age: 50 Year
  Sex: Male
  Weight: 69 kg

DRUGS (8)
  1. VOLTAREN [Concomitant]
  2. FAMOTIDINE [Concomitant]
  3. DEPAS [Concomitant]
  4. INTERFERON BETA NOS [Suspect]
     Indication: HEPATITIS C
     Dosage: 6 MIU;QD;IV  : 6 MIU;TIW;IV
     Route: 042
     Dates: start: 20100519, end: 20100616
  5. INTERFERON BETA NOS [Suspect]
     Indication: HEPATITIS C
     Dosage: 6 MIU;QD;IV  : 6 MIU;TIW;IV
     Route: 042
     Dates: start: 20100617, end: 20101105
  6. DOGMATYL [Concomitant]
  7. KETOPROFEN [Concomitant]
  8. REBETOL [Suspect]
     Indication: HEPATITIS C
     Dosage: 400 MG;BID;PO
     Route: 048
     Dates: start: 20100519, end: 20101109

REACTIONS (1)
  - PROTEINURIA [None]
